FAERS Safety Report 5390956-5 (Version None)
Quarter: 2007Q3

REPORT INFORMATION
  Report Type: 
  Country: None (occurrence: None)
  Receive Date: 20070716
  Receipt Date: 20060727
  Transmission Date: 20080115
  Serious: Yes (Hospitalization)
  Sender: FDA-Public Use
  Company Number: MPS1-10574

PATIENT
  Age: 15 Month
  Sex: Female
  Weight: 8.41 kg

DRUGS (1)
  1. ALDURAZYME [Suspect]
     Indication: MUCOPOLYSACCHARIDOSIS I
     Dosage: 11.6 MG Q2WKS IV
     Route: 042
     Dates: start: 20060101

REACTIONS (2)
  - CENTRAL LINE INFECTION [None]
  - HUMAN T-CELL LYMPHOTROPIC VIRUS INFECTION [None]
